FAERS Safety Report 6402779-6 (Version None)
Quarter: 2009Q4

REPORT INFORMATION
  Report Type: 
  Country: None (occurrence: None)
  Receive Date: 20091016
  Receipt Date: 20070321
  Transmission Date: 20100525
  Serious: Yes (Disabling)
  Sender: FDA-Public Use
  Company Number: US-ASTRAZENECA-2006UW10759

PATIENT
  Sex: Female
  Weight: 92.8 kg

DRUGS (9)
  1. SEROQUEL [Suspect]
     Indication: PSYCHOTIC DISORDER
     Dosage: 100 MG TO 600 MG AT NIGHT
     Route: 048
     Dates: start: 20060127
  2. ZYPREXA [Suspect]
     Route: 065
  3. KLONOPIN [Concomitant]
     Indication: ANXIETY
     Dosage: 0.5 MG TO 6 MG THREE TIMES A DAY
     Route: 048
     Dates: start: 20050208
  4. WELLBUTRIN SR [Concomitant]
     Route: 065
     Dates: start: 20050208, end: 20061215
  5. ABILIFY [Concomitant]
     Route: 065
     Dates: start: 20061215
  6. CYMBALTA [Concomitant]
     Indication: DEPRESSION
     Dosage: 30 TO 60 MG DAILY
     Route: 065
     Dates: start: 20060522
  7. GLUCOPHAGE [Concomitant]
     Route: 065
     Dates: start: 20070208
  8. NOVOLOG [Concomitant]
     Dosage: 10 UNITS TWO TIMES A DAY
     Route: 065
     Dates: start: 20070208
  9. LAMICTAL [Concomitant]
     Dosage: 150 TO 200 MG AT NIGHT
     Route: 065
     Dates: start: 20070212

REACTIONS (1)
  - ILL-DEFINED DISORDER [None]
